FAERS Safety Report 4742528-0 (Version None)
Quarter: 2005Q3

REPORT INFORMATION
  Report Type: 
  Country: None (occurrence: None)
  Receive Date: 20050808
  Receipt Date: 20050725
  Transmission Date: 20060218
  Serious: Yes (Hospitalization)
  Sender: FDA-Public Use
  Company Number: USA050393172

PATIENT
  Age: 83 Year
  Sex: Female

DRUGS (4)
  1. FORTEO [Suspect]
     Indication: OSTEOPOROSIS
     Dates: start: 20050310, end: 20050711
  2. CREON [Concomitant]
  3. NEXIUM [Concomitant]
  4. OSCAL 500-D [Concomitant]

REACTIONS (7)
  - BLOOD CALCIUM INCREASED [None]
  - CONDITION AGGRAVATED [None]
  - GALLBLADDER DISORDER [None]
  - INJECTION SITE DISCOLOURATION [None]
  - INJECTION SITE HAEMORRHAGE [None]
  - PANCREATIC DISORDER [None]
  - PHARMACEUTICAL PRODUCT COMPLAINT [None]
